FAERS Safety Report 5098089-2 (Version None)
Quarter: 2006Q3

REPORT INFORMATION
  Report Type: 
  Country: None (occurrence: None)
  Receive Date: 20060906
  Receipt Date: 20060407
  Transmission Date: 20061208
  Serious: Yes (Other)
  Sender: FDA-Public Use
  Company Number: US-GLAXOSMITHKLINE-A0600938A

PATIENT
  Age: 73 Year
  Sex: Female

DRUGS (14)
  1. REQUIP [Suspect]
     Indication: RESTLESS LEGS SYNDROME
     Dosage: .25MG PER DAY
     Route: 048
     Dates: start: 20060228
  2. ATACAND [Concomitant]
  3. TRAMADOL HCL [Concomitant]
  4. VYTORIN [Concomitant]
  5. AGGRENOX [Concomitant]
  6. VERELAN [Concomitant]
  7. GLYBURIDE [Concomitant]
  8. FORTAMET [Concomitant]
  9. MOBIC [Concomitant]
  10. ALLOPURINOL [Concomitant]
  11. ASPIRIN [Concomitant]
  12. VITAMIN B COMPLEX CAP [Concomitant]
  13. ASCORBIC ACID [Concomitant]
  14. VITAMIN D [Concomitant]

REACTIONS (1)
  - RENAL FAILURE [None]
